FAERS Safety Report 24761730 (Version 5)
Quarter: 2025Q3

REPORT INFORMATION
  Report Type: Report from Study
  Country: US (occurrence: US)
  Receive Date: 20241220
  Receipt Date: 20250924
  Transmission Date: 20251021
  Serious: Yes (Hospitalization, Other)
  Sender: ABBVIE
  Company Number: US-ABBVIE-6051583

PATIENT
  Age: 50 Year
  Sex: Male

DRUGS (1)
  1. SKYRIZI [Suspect]
     Active Substance: RISANKIZUMAB-RZAA
     Indication: Crohn^s disease
     Route: 058
     Dates: start: 20221208

REACTIONS (19)
  - Gastroenteritis [Unknown]
  - Norovirus infection [Unknown]
  - Carpal tunnel syndrome [Not Recovered/Not Resolved]
  - Hyperhidrosis [Unknown]
  - Septic shock [Recovered/Resolved]
  - Thrombosis [Not Recovered/Not Resolved]
  - Hypoaesthesia [Unknown]
  - Procedural pain [Unknown]
  - Ankle operation [Unknown]
  - Feeling abnormal [Unknown]
  - Septic shock [Unknown]
  - Hypotension [Recovered/Resolved]
  - Hypotension [Unknown]
  - Rotator cuff syndrome [Not Recovered/Not Resolved]
  - Ankle fracture [Recovered/Resolved]
  - Nephrolithiasis [Recovered/Resolved]
  - Gout [Recovered/Resolved]
  - Ileostomy [Recovered/Resolved]
  - Blood glucose abnormal [Not Recovered/Not Resolved]

NARRATIVE: CASE EVENT DATE: 20230601
